FAERS Safety Report 6784144-5 (Version None)
Quarter: 2010Q2

REPORT INFORMATION
  Report Type: 
  Country: None (occurrence: None)
  Receive Date: 20100622
  Receipt Date: 20100613
  Transmission Date: 20101027
  Serious: Yes (Other)
  Sender: FDA-Public Use
  Company Number: US-JNJFOC-20100604458

PATIENT
  Sex: Male

DRUGS (4)
  1. TYLENOL (GELTAB) [Suspect]
     Route: 048
  2. TYLENOL (GELTAB) [Suspect]
     Indication: PYREXIA
     Route: 048
  3. CHILDREN'S MOTRIN [Suspect]
  4. CHILDREN'S MOTRIN [Suspect]
     Indication: PYREXIA

REACTIONS (3)
  - ASTHMA [None]
  - MUCOUS MEMBRANE DISORDER [None]
  - NAUSEA [None]
